FAERS Safety Report 9725251 (Version 1)
Quarter: 2013Q4

REPORT INFORMATION
  Report Type: Spontaneous
  Country: US (occurrence: None)
  Receive Date: 20131129
  Receipt Date: 20131129
  Transmission Date: 20140711
  Serious: Yes (Hospitalization)
  Sender: FDA-Public Use
  Company Number: SYM-2013-13330

PATIENT
  Age: 61 Year
  Sex: Female

DRUGS (1)
  1. XENAZINE (TETRABENAZINE) (25 MILLIGRAM) (TETRABENAZINE) [Suspect]
     Indication: HUNTINGTON^S DISEASE
     Dosage: 25 MG, 3 IN 1 D, ORAL
     Route: 048
     Dates: start: 20131016

REACTIONS (3)
  - Pneumonia [None]
  - Hypertension [None]
  - Palpitations [None]
